FAERS Safety Report 13700292 (Version 1)
Quarter: 2017Q2

REPORT INFORMATION
  Report Type: Spontaneous
  Country: US (occurrence: US)
  Receive Date: 20170628
  Receipt Date: 20170628
  Transmission Date: 20170830
  Serious: No
  Sender: FDA-Public Use
  Company Number: None

PATIENT
  Age: 73 Year
  Sex: Male
  Weight: 91.17 kg

DRUGS (1)
  1. HARVONI [Suspect]
     Active Substance: LEDIPASVIR\SOFOSBUVIR
     Dosage: 90-400MG QDAY PO
     Route: 048
     Dates: start: 20170625, end: 20170627

REACTIONS (4)
  - Chest discomfort [None]
  - Insomnia [None]
  - Feeling hot [None]
  - Depression [None]

NARRATIVE: CASE EVENT DATE: 20170626
